FAERS Safety Report 4295954-0 (Version None)
Quarter: 2004Q1

REPORT INFORMATION
  Report Type: 
  Country: None (occurrence: None)
  Receive Date: 20040212
  Receipt Date: 20040202
  Transmission Date: 20041129
  Serious: No
  Sender: FDA-Public Use
  Company Number: 04P-167-0249320-00

PATIENT
  Age: 49 Year
  Sex: Female
  Weight: 69.9 kg

DRUGS (4)
  1. MERIDIA [Suspect]
     Indication: OBESITY
     Dosage: 10 MG, 1 IN 1 D, PER ORAL
     Route: 048
     Dates: start: 20030930, end: 20031202
  2. THYROXINE [Concomitant]
  3. DICLOFENAC [Concomitant]
  4. PARACETAMOL [Concomitant]

REACTIONS (3)
  - ANXIETY [None]
  - BLOOD PRESSURE INCREASED [None]
  - MALAISE [None]
